FAERS Safety Report 23677809 (Version 1)
Quarter: 2024Q1

REPORT INFORMATION
  Report Type: Spontaneous
  Country: US (occurrence: None)
  Receive Date: 20240326
  Receipt Date: 20240326
  Transmission Date: 20240410
  Serious: Yes (Other)
  Sender: FDA-Public Use
  Company Number: None

PATIENT
  Age: 52 Year
  Sex: Female
  Weight: 58.05 kg

DRUGS (1)
  1. ESTRADIOL\TESTOSTERONE [Suspect]
     Active Substance: ESTRADIOL\TESTOSTERONE
     Indication: Menopausal symptoms
     Dates: start: 20220526, end: 20230714

REACTIONS (3)
  - Uterine haemorrhage [None]
  - Product communication issue [None]
  - Hysterectomy [None]

NARRATIVE: CASE EVENT DATE: 20220526
